FAERS Safety Report 7576098-9 (Version None)
Quarter: 2011Q2

REPORT INFORMATION
  Report Type: 
  Country: None (occurrence: None)
  Receive Date: 20110623
  Receipt Date: 20110623
  Transmission Date: 20111010
  Serious: Yes (Other)
  Sender: FDA-Public Use
  Company Number: None

PATIENT
  Sex: Female
  Weight: 68.0396 kg

DRUGS (1)
  1. DEXILANT [Suspect]
     Indication: GASTROOESOPHAGEAL REFLUX DISEASE
     Dosage: 1 60MG PER DAY ONCE A DAY
     Dates: start: 20110503, end: 20110601

REACTIONS (5)
  - SKIN EXFOLIATION [None]
  - DERMAL CYST [None]
  - RASH [None]
  - BURNING SENSATION [None]
  - PARAESTHESIA [None]
